FAERS Safety Report 14995340 (Version 1)
Quarter: 2018Q2

REPORT INFORMATION
  Report Type: Spontaneous
  Country: US (occurrence: US)
  Receive Date: 20180611
  Receipt Date: 20180611
  Transmission Date: 20180711
  Serious: Yes (Other)
  Sender: FDA-Public Use
  Company Number: US-SA-2018SA001961

PATIENT
  Age: 53 Year
  Sex: Female
  Weight: 73.92 kg

DRUGS (6)
  1. TAXOTERE [Suspect]
     Active Substance: DOCETAXEL
     Indication: INVASIVE DUCTAL BREAST CARCINOMA
     Dosage: 130 MG,QCY
     Route: 042
     Dates: start: 20070801, end: 20070801
  2. TAXOTERE [Suspect]
     Active Substance: DOCETAXEL
     Dosage: 130 MG,QCY
     Route: 042
     Dates: start: 20070815, end: 20070815
  3. DOXYCYCLINE HYDROCHLORIDE [Concomitant]
     Active Substance: DOXYCYCLINE HYDROCHLORIDE
  4. ADRIAMYCIN [DOXORUBICIN] [Concomitant]
  5. TAXOL [Concomitant]
     Active Substance: PACLITAXEL
  6. DOCETAXEL. [Concomitant]
     Active Substance: DOCETAXEL

REACTIONS (1)
  - Alopecia [Not Recovered/Not Resolved]
